FAERS Safety Report 15730081 (Version 1)
Quarter: 2018Q4

REPORT INFORMATION
  Report Type: Report from Study
  Country: CA (occurrence: CA)
  Receive Date: 20181217
  Receipt Date: 20181217
  Transmission Date: 20190205
  Serious: Yes (Death)
  Sender: FDA-Public Use
  Company Number: CA-SA-2018SA093402

PATIENT
  Age: 71 Year
  Sex: Male

DRUGS (2)
  1. CABAZITAXEL [Suspect]
     Active Substance: CABAZITAXEL
     Indication: HORMONE-REFRACTORY PROSTATE CANCER
     Dosage: 40 MG,QCY
     Route: 042
     Dates: start: 20180116, end: 20180116
  2. CABAZITAXEL [Suspect]
     Active Substance: CABAZITAXEL
     Dosage: 40 MG,QCY
     Route: 042
     Dates: start: 20180309, end: 20180309

REACTIONS (1)
  - Rectal haemorrhage [Fatal]

NARRATIVE: CASE EVENT DATE: 20180322
